FAERS Safety Report 11463674 (Version 1)
Quarter: 2015Q3

REPORT INFORMATION
  Report Type: Spontaneous
  Country: US (occurrence: US)
  Receive Date: 20150831
  Receipt Date: 20150831
  Transmission Date: 20151125
  Serious: Yes (Other)
  Sender: FDA-Public Use
  Company Number: US-ELI_LILLY_AND_COMPANY-US201104002669

PATIENT
  Age: 28 Year
  Sex: Male

DRUGS (3)
  1. CYMBALTA [Suspect]
     Active Substance: DULOXETINE HYDROCHLORIDE
     Indication: SOCIAL PHOBIA
     Dosage: 60 MG, QD
     Dates: start: 200611
  2. CYMBALTA [Suspect]
     Active Substance: DULOXETINE HYDROCHLORIDE
     Dosage: 30 MG, QD
     Dates: end: 20110305
  3. VALPROIC ACID. [Concomitant]
     Active Substance: VALPROIC ACID
     Dosage: 500 MG, UNK
     Dates: start: 2007

REACTIONS (9)
  - Hyperhidrosis [Recovering/Resolving]
  - Pruritus [Unknown]
  - Nightmare [Recovering/Resolving]
  - Intentional product misuse [Unknown]
  - Rectal haemorrhage [Unknown]
  - Influenza [Unknown]
  - Eczema [Unknown]
  - Mania [Unknown]
  - Erythema [Unknown]
